FAERS Safety Report 10012012 (Version 1)
Quarter: 2014Q1

REPORT INFORMATION
  Report Type: Spontaneous
  Country: US (occurrence: US)
  Receive Date: 20140314
  Receipt Date: 20140314
  Transmission Date: 20141002
  Serious: Yes (Other)
  Sender: FDA-Public Use
  Company Number: US-ACTAVIS-2014-04359

PATIENT
  Sex: Female

DRUGS (2)
  1. BUPRENORPHINE-NALOXONE (AELLC) [Suspect]
     Indication: DRUG DEPENDENCE
     Dosage: 1/4 TAB DAILY
     Route: 048
     Dates: start: 2008, end: 2011
  2. XANAX [Concomitant]
     Indication: PREMENSTRUAL SYNDROME
     Dosage: UNK, UNKNOWN
     Route: 065

REACTIONS (12)
  - Drug withdrawal syndrome [Recovered/Resolved]
  - Apparent death [Recovered/Resolved]
  - Depression [Recovered/Resolved]
  - Crying [Recovered/Resolved]
  - Nervous system disorder [Recovered/Resolved]
  - Chills [Recovered/Resolved]
  - Insomnia [Recovered/Resolved]
  - Tremor [Recovered/Resolved]
  - Quality of life decreased [Recovered/Resolved]
  - Decreased appetite [Recovered/Resolved]
  - Influenza [Recovered/Resolved]
  - Intentional drug misuse [Recovered/Resolved]
